FAERS Safety Report 8376367-9 (Version None)
Quarter: 2012Q1

REPORT INFORMATION
  Report Type: 
  Country: None (occurrence: None)
  Receive Date: 20120323
  Receipt Date: 20110504
  Transmission Date: 20120608
  Serious: Yes (Hospitalization)
  Sender: FDA-Public Use
  Company Number: 163-21880-11050652

PATIENT
  Age: 77 Year
  Sex: Male

DRUGS (1)
  1. REVLIMID [Suspect]
     Indication: MULTIPLE MYELOMA
     Dosage: 10 MG, X21 DAYS, PO
     Route: 048
     Dates: start: 20101208

REACTIONS (3)
  - INFECTION [None]
  - OEDEMA [None]
  - HOT FLUSH [None]
